FAERS Safety Report 11789963 (Version 1)
Quarter: 2015Q4

REPORT INFORMATION
  Report Type: Spontaneous
  Country: US (occurrence: None)
  Receive Date: 20151130
  Receipt Date: 20151130
  Transmission Date: 20160305
  Serious: Yes (Hospitalization)
  Sender: FDA-Public Use
  Company Number: None

PATIENT
  Age: 54 Year
  Sex: Male
  Weight: 125.3 kg

DRUGS (2)
  1. IBUPROFEN. [Suspect]
     Active Substance: IBUPROFEN
     Indication: OSTEOARTHRITIS
     Route: 048
     Dates: start: 20140901, end: 20150904
  2. IBUPROFEN. [Suspect]
     Active Substance: IBUPROFEN
     Indication: OSTEOARTHRITIS
     Route: 048
     Dates: start: 20140901, end: 20150904

REACTIONS (3)
  - Gastric haemorrhage [None]
  - Gastritis [None]
  - Cholestasis [None]

NARRATIVE: CASE EVENT DATE: 20150903
